FAERS Safety Report 8169349-3 (Version None)
Quarter: 2012Q1

REPORT INFORMATION
  Report Type: 
  Country: None (occurrence: None)
  Receive Date: 20120222
  Receipt Date: 20120210
  Transmission Date: 20120608
  Serious: Yes (Hospitalization)
  Sender: FDA-Public Use
  Company Number: 2012-00196

PATIENT
  Age: 44 Year
  Sex: Female
  Weight: 60 kg

DRUGS (3)
  1. VENLAFAXINE HYDROCHLORIDE [Suspect]
     Indication: MAJOR DEPRESSION
     Dosage: TOTAL DOSE UP TO 4.5 G
  2. LAMOTRIGINE [Suspect]
     Indication: MAJOR DEPRESSION
     Dosage: TOTAL DOSE UP TO 20 G
  3. DIAZEPAM (PILL) [Concomitant]

REACTIONS (13)
  - BLOOD SODIUM DECREASED [None]
  - BLOOD CREATINE PHOSPHOKINASE MB INCREASED [None]
  - BODY TEMPERATURE INCREASED [None]
  - HYPERREFLEXIA [None]
  - BLOOD CREATINE PHOSPHOKINASE INCREASED [None]
  - MUSCLE RIGIDITY [None]
  - NO THERAPEUTIC RESPONSE [None]
  - SUICIDE ATTEMPT [None]
  - MYOCLONUS [None]
  - HAEMODIALYSIS [None]
  - LOSS OF CONSCIOUSNESS [None]
  - INCORRECT DOSE ADMINISTERED [None]
  - GRAND MAL CONVULSION [None]
